FAERS Safety Report 5988751-9 (Version None)
Quarter: 2008Q4

REPORT INFORMATION
  Report Type: 
  Country: None (occurrence: None)
  Receive Date: 20081210
  Receipt Date: 20081204
  Transmission Date: 20090506
  Serious: Yes (Other)
  Sender: FDA-Public Use
  Company Number: PHHY2008FR28694

PATIENT
  Sex: Male

DRUGS (4)
  1. STALEVO 100 [Suspect]
     Indication: PARKINSON'S DISEASE
     Dosage: UNK
  2. REQUIP [Suspect]
     Indication: PARKINSON'S DISEASE
  3. SINEMET [Concomitant]
  4. EXELON [Concomitant]

REACTIONS (3)
  - COMPULSIVE SEXUAL BEHAVIOUR [None]
  - PATHOLOGICAL GAMBLING [None]
  - SEXUAL ABUSE [None]
